FAERS Safety Report 19829233 (Version 3)
Quarter: 2021Q4

REPORT INFORMATION
  Report Type: Spontaneous
  Country: JP (occurrence: JP)
  Receive Date: 20210914
  Receipt Date: 20211221
  Transmission Date: 20220304
  Serious: Yes (Hospitalization)
  Sender: FDA-Public Use
  Company Number: JP-AMGEN-JPNSP2021139549

PATIENT
  Sex: Male

DRUGS (2)
  1. OTEZLA [Suspect]
     Active Substance: APREMILAST
     Indication: Psoriasis
     Dosage: UNK
     Route: 048
     Dates: start: 2017
  2. OTEZLA [Suspect]
     Active Substance: APREMILAST
     Indication: Palmoplantar pustulosis

REACTIONS (2)
  - Palmoplantar pustulosis [Recovering/Resolving]
  - Therapeutic product effect incomplete [Unknown]
